FAERS Safety Report 9817105 (Version 2)
Quarter: 2014Q1

REPORT INFORMATION
  Report Type: Report from Study
  Country: CL (occurrence: CL)
  Receive Date: 20140114
  Receipt Date: 20140114
  Transmission Date: 20141002
  Serious: Yes (Other)
  Sender: FDA-Public Use
  Company Number: PHHY2013CL143610

PATIENT
  Age: 69 Year
  Sex: Female

DRUGS (2)
  1. GALVUS MET [Suspect]
     Indication: DIABETES MELLITUS
     Dosage: 1 DF, BID (IN MORNING AND AT NIGHT)
     Dates: end: 20131202
  2. RASILEZ D [Suspect]
     Indication: HYPERTENSION

REACTIONS (2)
  - Obesity [Recovering/Resolving]
  - Blood pressure increased [Unknown]
